FAERS Safety Report 9914993 (Version 2)
Quarter: 2014Q1

REPORT INFORMATION
  Report Type: Report from Study
  Country: DZ (occurrence: DZ)
  Receive Date: 20140220
  Receipt Date: 20140307
  Transmission Date: 20141002
  Serious: Yes (Death)
  Sender: FDA-Public Use
  Company Number: DZ-TEVA-463620USA

PATIENT
  Sex: Male

DRUGS (9)
  1. BENDAMUSTINE [Suspect]
     Indication: PLASMA CELL MYELOMA
     Dosage: 240 (UNITS NOT SPECIFIED)
     Route: 042
     Dates: start: 20130131, end: 20130131
  2. METHYLPREDNISOLONE [Suspect]
     Indication: PLASMA CELL MYELOMA
     Dosage: 120 (UNITS NOT SPECIFIED)
     Route: 042
     Dates: start: 20140130, end: 20140203
  3. SULFAMETHOXAZOLE W/TRIMETHOPRIM [Concomitant]
     Indication: PROPHYLAXIS
     Dosage: 240 (UNITS NOT SPECIFIED)
     Route: 048
     Dates: start: 20140202
  4. CEFIXIME [Concomitant]
     Dates: start: 20140122
  5. SULFAMETHOXAZOLE/TRIMETHOPRIM [Concomitant]
     Dates: start: 20140122, end: 20140202
  6. SODIUM POLYSTYRENE SULFONATE [Concomitant]
     Dates: start: 20130123
  7. ALBUMIN [Concomitant]
     Dates: start: 20140202
  8. PRISTINAMYCIN [Concomitant]
     Dates: start: 20140102
  9. PIPERACILLIN [Concomitant]
     Dates: start: 20140102

REACTIONS (2)
  - Acute pulmonary oedema [Fatal]
  - Anuria [Fatal]
